FAERS Safety Report 6836487-4 (Version None)
Quarter: 2010Q3

REPORT INFORMATION
  Report Type: 
  Country: None (occurrence: None)
  Receive Date: 20100713
  Receipt Date: 20100707
  Transmission Date: 20110219
  Serious: Yes (Other)
  Sender: FDA-Public Use
  Company Number: FR-ABBOTT-09P-056-0584381-00

PATIENT
  Age: 26 Year
  Sex: Male

DRUGS (1)
  1. DEPAKENE [Suspect]
     Indication: MYOCLONIC EPILEPSY
     Dosage: 1000 MG DAILY
     Route: 048
     Dates: start: 19940101, end: 20100401

REACTIONS (2)
  - AZOOSPERMIA [None]
  - INFERTILITY MALE [None]
